FAERS Safety Report 7604476-8 (Version None)
Quarter: 2011Q3

REPORT INFORMATION
  Report Type: 
  Country: None (occurrence: None)
  Receive Date: 20110712
  Receipt Date: 20110706
  Transmission Date: 20111222
  Serious: Yes (Hospitalization)
  Sender: FDA-Public Use
  Company Number: GXKR2011DE02220

PATIENT
  Sex: Female

DRUGS (18)
  1. TRIAMCINOLONE [Concomitant]
     Indication: PAIN
     Route: 014
  2. METHOTREXATE [Suspect]
     Dosage: 25 MG, QW
     Route: 058
     Dates: start: 20110127
  3. CARBOSTESIN ^ASTRA^ [Concomitant]
     Indication: PAIN
     Dosage: UNK UKN, UNK
     Route: 014
  4. NOVALGIN                                /SCH/ [Concomitant]
     Dosage: 40 GTT, TID
  5. HUMIRA [Suspect]
     Indication: PSORIASIS
     Dosage: 40 MG, QW
     Route: 058
     Dates: start: 20110329
  6. ENOXAPARIN SODIUM [Concomitant]
     Indication: THROMBOSIS
     Dosage: 100 MG, BID
     Route: 058
  7. ARCOXIA [Concomitant]
     Dosage: 90 MG, BID
  8. FOLSAN [Concomitant]
     Dosage: 25 MG, QW
     Route: 048
  9. DITHRANOL [Concomitant]
  10. CLOTRIMAZOLE [Concomitant]
  11. MORPHINE SULFATE [Concomitant]
     Indication: PAIN
     Dosage: 10 MG, BID
  12. TRAMAL LONG [Concomitant]
     Indication: PAIN
     Dosage: 150 MG, BID
  13. SINGULAIR [Concomitant]
     Dosage: 10 MG, QD
  14. UREA [Concomitant]
  15. CETIRIZINE HCL [Concomitant]
     Dosage: 10 MG, TID
  16. ELIDEL [Concomitant]
  17. INSIDON [Suspect]
     Dosage: 50 MG, 1-1-2 DAILY
     Route: 048
  18. PSORCUTAN [Concomitant]

REACTIONS (3)
  - PAIN [None]
  - MUSCLE SPASMS [None]
  - TETANY [None]
